FAERS Safety Report 23612405 (Version 6)
Quarter: 2024Q4

REPORT INFORMATION
  Report Type: Spontaneous
  Country: US (occurrence: US)
  Receive Date: 20240308
  Receipt Date: 20241227
  Transmission Date: 20250114
  Serious: No
  Sender: PFIZER
  Company Number: US-PFIZER INC-PV202400032125

PATIENT
  Age: 73 Year
  Sex: Female

DRUGS (1)
  1. XALKORI [Suspect]
     Active Substance: CRIZOTINIB
     Indication: Lung carcinoma cell type unspecified stage IV
     Dosage: 250MG, 1 BY MOUTH EVERY 12 HOURS (BID) [TWICE A DAY]
     Route: 048

REACTIONS (4)
  - Anxiety [Unknown]
  - Memory impairment [Unknown]
  - Visual perseveration [Not Recovered/Not Resolved]
  - Cardiac disorder [Unknown]
